FAERS Safety Report 9854737 (Version 1)
Quarter: 2014Q1

REPORT INFORMATION
  Report Type: Report from Study
  Country: US (occurrence: US)
  Receive Date: 20140130
  Receipt Date: 20140130
  Transmission Date: 20141002
  Serious: Yes (Other)
  Sender: FDA-Public Use
  Company Number: US-ROCHE-1340369

PATIENT
  Sex: Male

DRUGS (16)
  1. AVASTIN [Suspect]
     Indication: DIABETIC RETINAL OEDEMA
     Route: 050
     Dates: start: 20130917
  2. AVASTIN [Suspect]
     Route: 050
     Dates: start: 20131015
  3. AVASTIN [Suspect]
     Route: 050
     Dates: start: 20131119
  4. AVASTIN [Suspect]
     Route: 050
     Dates: start: 20131217
  5. LUCENTIS [Suspect]
     Indication: DIABETIC RETINAL OEDEMA
     Route: 050
  6. TERAZOSIN HCL [Concomitant]
     Route: 048
  7. METOPROLOL SUCCINATE [Concomitant]
     Route: 048
  8. LASIX [Concomitant]
     Route: 048
  9. ASPIRIN [Concomitant]
     Route: 048
  10. PLAVIX [Concomitant]
     Route: 048
  11. LANTUS [Concomitant]
     Dosage: 100 UNIT/ML
     Route: 065
  12. AMLODIPINE BESYLATE [Concomitant]
     Route: 065
  13. NOVOLOG [Concomitant]
     Dosage: 100 UNIT/ML
     Route: 065
  14. LOVASTATIN [Concomitant]
     Route: 065
  15. ZYRTEC [Concomitant]
     Route: 065
  16. CALCITRIOL [Concomitant]
     Route: 048

REACTIONS (4)
  - Retinal oedema [Unknown]
  - Eye swelling [Unknown]
  - Visual impairment [Unknown]
  - Vision blurred [Unknown]
